FAERS Safety Report 8017393-9 (Version None)
Quarter: 2012Q1

REPORT INFORMATION
  Report Type: 
  Country: None (occurrence: None)
  Receive Date: 20120102
  Receipt Date: 20111226
  Transmission Date: 20120608
  Serious: Yes (Other)
  Sender: FDA-Public Use
  Company Number: JP-ROCHE-1026618

PATIENT

DRUGS (1)
  1. ACTEMRA [Suspect]
     Indication: RHEUMATOID ARTHRITIS
     Route: 042
     Dates: start: 20031201, end: 20080701

REACTIONS (4)
  - ARTHRITIS INFECTIVE [None]
  - PERITONEAL TUBERCULOSIS [None]
  - CELLULITIS [None]
  - ACUTE CORONARY SYNDROME [None]
